FAERS Safety Report 18856167 (Version 1)
Quarter: 2021Q1

REPORT INFORMATION
  Report Type: Spontaneous
  Country: US (occurrence: US)
  Receive Date: 20210206
  Receipt Date: 20210206
  Transmission Date: 20210420
  Serious: No
  Sender: FDA-Public Use
  Company Number: US-009507513-2101USA007305

PATIENT
  Age: 82 Year

DRUGS (2)
  1. JANUMET [Suspect]
     Active Substance: METFORMIN HYDROCHLORIDE\SITAGLIPTIN PHOSPHATE
     Route: 048
  2. GLYBURIDE. [Concomitant]
     Active Substance: GLYBURIDE

REACTIONS (1)
  - Hypoglycaemia [Recovered/Resolved]
